FAERS Safety Report 9412399 (Version 1)
Quarter: 2013Q3

REPORT INFORMATION
  Report Type: Spontaneous
  Country: DE (occurrence: DE)
  Receive Date: 20130722
  Receipt Date: 20130722
  Transmission Date: 20140515
  Serious: Yes (Other)
  Sender: FDA-Public Use
  Company Number: DE-BAYER-2013-086126

PATIENT
  Sex: Male

DRUGS (1)
  1. BETAFERON [Suspect]

REACTIONS (1)
  - Angina pectoris [None]
